FAERS Safety Report 20965421 (Version 3)
Quarter: 2022Q3

REPORT INFORMATION
  Report Type: Spontaneous
  Country: FR (occurrence: FR)
  Receive Date: 20220616
  Receipt Date: 20220625
  Transmission Date: 20221027
  Serious: Yes (Death)
  Sender: FDA-Public Use
  Company Number: FR-NOVARTISPH-NVSC2022FR138036

PATIENT
  Age: 76 Year
  Sex: Female
  Weight: 67 kg

DRUGS (2)
  1. LUTATHERA [Suspect]
     Active Substance: LUTETIUM OXODOTREOTIDE LU-177
     Indication: Neuroendocrine tumour
     Dosage: 7.4 GBQ
     Route: 042
     Dates: start: 20210712, end: 20210712
  2. LUTATHERA [Suspect]
     Active Substance: LUTETIUM OXODOTREOTIDE LU-177
     Dosage: UNK (RECEIVED 2 DOSES)
     Route: 065
     Dates: start: 20210913

REACTIONS (2)
  - Neuroendocrine tumour [Fatal]
  - Malignant neoplasm progression [Fatal]

NARRATIVE: CASE EVENT DATE: 20210827
